FAERS Safety Report 5295515-0 (Version None)
Quarter: 2007Q2

REPORT INFORMATION
  Report Type: 
  Country: None (occurrence: None)
  Receive Date: 20070406
  Receipt Date: 20070322
  Transmission Date: 20071010
  Serious: Yes (Hospitalization, Congenital Anomaly)
  Sender: FDA-Public Use
  Company Number: TNZUK200700035

PATIENT
  Age: 15 Day
  Sex: Female
  Weight: 3.42 kg

DRUGS (1)
  1. INNOHEP [Suspect]
     Indication: DEEP VEIN THROMBOSIS
     Dosage: TRANSPLACENTAL
     Route: 064

REACTIONS (4)
  - ACUTE LYMPHOCYTIC LEUKAEMIA [None]
  - DRUG EXPOSURE DURING PREGNANCY [None]
  - HYPERCALCAEMIA [None]
  - SKIN DISCOLOURATION [None]
